FAERS Safety Report 20892883 (Version 1)
Quarter: 2022Q2

REPORT INFORMATION
  Report Type: Report from Study
  Country: DE (occurrence: DE)
  Receive Date: 20220531
  Receipt Date: 20220531
  Transmission Date: 20220720
  Serious: Yes (Death, Other)
  Sender: FDA-Public Use
  Company Number: DE-AUROBINDO-AUR-APL-2022-016814

PATIENT

DRUGS (8)
  1. IMATINIB [Suspect]
     Active Substance: IMATINIB
     Indication: Leiomyoma
     Dosage: UNK
     Route: 065
  2. IMATINIB [Suspect]
     Active Substance: IMATINIB
     Indication: Infantile fibromatosis
  3. CYCLOPHOSPHAMIDE [Suspect]
     Active Substance: CYCLOPHOSPHAMIDE
     Indication: Leiomyoma
     Dosage: UNK
     Route: 065
  4. CYCLOPHOSPHAMIDE [Suspect]
     Active Substance: CYCLOPHOSPHAMIDE
     Indication: Infantile fibromatosis
  5. DACTINOMYCIN [Suspect]
     Active Substance: DACTINOMYCIN
     Indication: Leiomyoma
     Dosage: UNK
     Route: 065
  6. DACTINOMYCIN [Suspect]
     Active Substance: DACTINOMYCIN
     Indication: Infantile fibromatosis
  7. VINCRISTINE [Suspect]
     Active Substance: VINCRISTINE
     Indication: Leiomyoma
     Dosage: UNK
     Route: 065
  8. VINCRISTINE [Suspect]
     Active Substance: VINCRISTINE
     Indication: Infantile fibromatosis

REACTIONS (2)
  - Disease progression [Fatal]
  - Drug ineffective for unapproved indication [Unknown]
